FAERS Safety Report 8553890-5 (Version None)
Quarter: 2012Q3

REPORT INFORMATION
  Report Type: 
  Country: None (occurrence: None)
  Receive Date: 20120731
  Receipt Date: 20120723
  Transmission Date: 20120928
  Serious: Yes (Hospitalization)
  Sender: FDA-Public Use
  Company Number: JP-VERTEX PHARMACEUTICALS INC.-AE-2012-007914

PATIENT
  Age: 53 Year
  Sex: Male

DRUGS (6)
  1. LOXONIN [Concomitant]
     Route: 048
     Dates: start: 20120407, end: 20120411
  2. REBETOL [Concomitant]
     Route: 048
     Dates: start: 20120423
  3. REBETOL [Concomitant]
     Route: 048
     Dates: start: 20120407, end: 20120411
  4. TELAVIC (TELAPREVIR) [Suspect]
     Indication: HEPATITIS C
     Route: 048
     Dates: start: 20120407, end: 20120411
  5. PEG-INTRON [Concomitant]
     Route: 058
     Dates: start: 20120423
  6. PEG-INTRON [Concomitant]
     Route: 058
     Dates: start: 20120407, end: 20120411

REACTIONS (1)
  - RASH [None]
